FAERS Safety Report 24012763 (Version 1)
Quarter: 2024Q2

REPORT INFORMATION
  Report Type: Spontaneous
  Country: DK (occurrence: DK)
  Receive Date: 20240626
  Receipt Date: 20240626
  Transmission Date: 20240715
  Serious: Yes (Death, Life-Threatening, Hospitalization, Disabling, Other)
  Sender: FDA-Public Use
  Company Number: None

PATIENT
  Age: 44 Year
  Sex: Female
  Weight: 63 kg

DRUGS (5)
  1. KYLEENA [Concomitant]
     Active Substance: LEVONORGESTREL
     Indication: Intrauterine contraception
     Dosage: UNK (SPIRALEN)
     Route: 015
     Dates: start: 20190327, end: 20240516
  2. IBUPROFEN [Concomitant]
     Active Substance: IBUPROFEN
     Indication: Pain
     Dosage: 1 TABLETS AS NEEDED, MAXIMUM 3 TIMES DAILY
     Route: 048
     Dates: start: 20230922, end: 20240405
  3. ACETAMINOPHEN [Concomitant]
     Active Substance: ACETAMINOPHEN
     Indication: Pain
     Dosage: 2 TABLETS AS NEEDED, MAXIMUM 3 TIMES DAILY
     Route: 048
     Dates: start: 20230922, end: 20240516
  4. ELOCON [Concomitant]
     Active Substance: MOMETASONE FUROATE
     Indication: Eczema
     Dosage: APPLICATION IN THE MORNING^. (1 DAILY FOR 2 WEEKS, THEN X 2-3 WEEKLY)
     Route: 003
     Dates: start: 20171128
  5. WEGOVY [Suspect]
     Active Substance: SEMAGLUTIDE
     Indication: Overweight
     Dosage: 1 MG, QW
     Route: 058
     Dates: start: 20230111

REACTIONS (1)
  - Myocardial infarction [Fatal]

NARRATIVE: CASE EVENT DATE: 20240405
